FAERS Safety Report 21104519 (Version 1)
Quarter: 2022Q3

REPORT INFORMATION
  Report Type: Spontaneous
  Country: US (occurrence: None)
  Receive Date: 20220719
  Receipt Date: 20220719
  Transmission Date: 20221027
  Serious: Yes (Other)
  Sender: FDA-Public Use
  Company Number: None

PATIENT
  Age: 61 Year
  Sex: Female
  Weight: 82.55 kg

DRUGS (2)
  1. SOFOSBUVIR\VELPATASVIR [Suspect]
     Active Substance: SOFOSBUVIR\VELPATASVIR
     Indication: Chronic hepatitis C
     Dosage: FREQUENCY : DAILY;?
     Route: 048
     Dates: start: 20220118, end: 20220403
  2. INFLECTRA [Concomitant]
     Active Substance: INFLIXIMAB-DYYB

REACTIONS (1)
  - Treatment failure [None]

NARRATIVE: CASE EVENT DATE: 20220603
